FAERS Safety Report 6356499-7 (Version None)
Quarter: 2009Q3

REPORT INFORMATION
  Report Type: 
  Country: None (occurrence: None)
  Receive Date: 20090915
  Receipt Date: 20090908
  Transmission Date: 20100115
  Serious: Yes (Other)
  Sender: FDA-Public Use
  Company Number: B0577970A

PATIENT
  Sex: Male
  Weight: 49 kg

DRUGS (9)
  1. LAMICTAL [Suspect]
     Indication: EPILEPSY
     Dosage: 50MG PER DAY
     Route: 048
     Dates: start: 20090428, end: 20090514
  2. LAMICTAL [Suspect]
     Dosage: 50MG PER DAY
     Route: 048
     Dates: start: 20090512, end: 20090512
  3. LAMICTAL [Suspect]
     Dosage: 25MG PER DAY
     Route: 048
     Dates: start: 20090513, end: 20090513
  4. EXCEGRAN [Concomitant]
     Indication: EPILEPSY
     Dosage: 200MG PER DAY
     Route: 048
     Dates: start: 20090127
  5. ALEVIATIN [Concomitant]
     Indication: EPILEPSY
     Dosage: 400MG PER DAY
     Route: 065
  6. MAGLAX [Concomitant]
     Indication: CONSTIPATION
     Dosage: 1800MG PER DAY
     Route: 048
     Dates: start: 20090127
  7. WARFARIN SODIUM [Concomitant]
     Dosage: 3.5MG PER DAY
     Route: 048
     Dates: start: 20090701
  8. EXCEGRAN [Concomitant]
     Dosage: 100MG PER DAY
     Route: 048
     Dates: start: 20090428
  9. WARFARIN SODIUM [Concomitant]
     Dosage: 3MG PER DAY
     Route: 048
     Dates: start: 20090127

REACTIONS (4)
  - LIP OEDEMA [None]
  - OCULOMUCOCUTANEOUS SYNDROME [None]
  - ORAL MUCOSA EROSION [None]
  - RASH [None]
